FAERS Safety Report 7654005-8 (Version None)
Quarter: 2011Q3

REPORT INFORMATION
  Report Type: 
  Country: None (occurrence: None)
  Receive Date: 20110803
  Receipt Date: 20110719
  Transmission Date: 20111222
  Serious: Yes (Hospitalization)
  Sender: FDA-Public Use
  Company Number: PHHY2011JP68766

PATIENT
  Sex: Female

DRUGS (27)
  1. FLUCONAZOLE [Suspect]
     Dosage: 400 MG, UNK
     Route: 041
     Dates: start: 20090530, end: 20090729
  2. SLOW-K [Concomitant]
     Dosage: 1200 MG, UNK
     Route: 065
     Dates: start: 20081116
  3. TOWARAT [Concomitant]
     Dosage: 20 MG, UNK
     Route: 048
  4. LANSOPRAZOLE [Concomitant]
  5. ENALAPRIL MALEATE [Concomitant]
  6. BROTIZOLAM [Concomitant]
  7. VALTREX [Concomitant]
  8. PIPERACILLIN AND TAZOBACTAM [Suspect]
     Dosage: UNK UKN, UNK
     Route: 041
  9. FLUCONAZOLE [Suspect]
     Dosage: UNK UKN, UNK
     Route: 041
     Dates: start: 20090425, end: 20090512
  10. AMBISOME [Suspect]
     Dosage: 150 MG, UNK
     Route: 041
  11. ZOPICLONE [Concomitant]
  12. MECOBALAMIN [Concomitant]
     Indication: PROPHYLAXIS
     Dosage: 1500 MG, UNK
     Route: 048
     Dates: start: 20090225
  13. FUROSEMIDE [Concomitant]
  14. GRAN [Suspect]
     Dosage: UNK UKN, UNK
     Route: 058
  15. GLEEVEC [Concomitant]
  16. PANABATE [Concomitant]
  17. SPRYCEL [Concomitant]
  18. MUCOSTA [Concomitant]
  19. GLUCOSE [Concomitant]
     Dosage: 1 DF, UNK
     Route: 042
  20. NEO-MINOPHAGEN C [Concomitant]
     Dosage: 40 ML, UNK
     Route: 042
     Dates: start: 20090730
  21. ISONIAZID [Concomitant]
  22. POTASSIUM CHLORIDE [Concomitant]
     Dosage: UNK UKN, UNK
     Route: 042
     Dates: start: 20080916, end: 20090322
  23. EXJADE [Suspect]
     Dosage: 875 MG, UNK
     Route: 048
     Dates: start: 20090728
  24. LOXOPROFEN [Concomitant]
  25. HUMULIN R [Concomitant]
  26. CEFPIROME [Concomitant]
     Dosage: 2 G, UNK
     Route: 042
  27. ZOLPIDEM [Concomitant]

REACTIONS (4)
  - RENAL DISORDER [None]
  - VOMITING [None]
  - MALLORY-WEISS SYNDROME [None]
  - PYREXIA [None]
